FAERS Safety Report 4699246-7 (Version None)
Quarter: 2005Q2

REPORT INFORMATION
  Report Type: 
  Country: None (occurrence: None)
  Receive Date: 20050624
  Receipt Date: 20050311
  Transmission Date: 20051028
  Serious: Yes (Hospitalization)
  Sender: FDA-Public Use
  Company Number: US-MERCK-0503USA02583

PATIENT
  Age: 61 Year
  Sex: Male

DRUGS (8)
  1. VIOXX [Suspect]
     Indication: NECK PAIN
     Route: 048
     Dates: start: 20010501, end: 20040601
  2. PEPCID [Concomitant]
     Route: 065
  3. ASPIRIN [Concomitant]
     Route: 065
  4. CIPRO [Concomitant]
     Route: 065
  5. DOXYCYCLINE [Concomitant]
     Route: 065
  6. PREDNISONE [Concomitant]
     Route: 065
  7. TYLENOL [Concomitant]
     Route: 065
  8. CELEBREX [Concomitant]
     Route: 065
     Dates: start: 20010101

REACTIONS (2)
  - HEART RATE IRREGULAR [None]
  - MYOCARDIAL INFARCTION [None]
